FAERS Safety Report 8144568-0 (Version None)
Quarter: 2012Q1

REPORT INFORMATION
  Report Type: 
  Country: None (occurrence: None)
  Receive Date: 20120217
  Receipt Date: 20120209
  Transmission Date: 20120608
  Serious: Yes (Life-Threatening)
  Sender: FDA-Public Use
  Company Number: KR-GENZYME-THYM-1003118

PATIENT
  Sex: Male
  Weight: 77 kg

DRUGS (4)
  1. METHYLPREDNISOLONE [Concomitant]
     Indication: PROPHYLAXIS
     Dosage: 2 MG/KG, QD
     Route: 065
     Dates: start: 20111129, end: 20111203
  2. THYMOGLOBULIN [Suspect]
     Indication: BONE MARROW CONDITIONING REGIMEN
     Dosage: 3 MG/KG, QD
     Route: 042
     Dates: start: 20111129, end: 20111203
  3. CEFEPIME [Concomitant]
     Indication: INFECTION
     Dosage: 2000 MG, BID
     Route: 065
     Dates: start: 20111129, end: 20111206
  4. ISEPAMICIN [Concomitant]
     Indication: INFECTION
     Dosage: 400 MG, QD
     Route: 065
     Dates: start: 20111129, end: 20111205

REACTIONS (2)
  - ASPARTATE AMINOTRANSFERASE INCREASED [None]
  - ALANINE AMINOTRANSFERASE INCREASED [None]
